FAERS Safety Report 7610871-3 (Version None)
Quarter: 2011Q3

REPORT INFORMATION
  Report Type: 
  Country: None (occurrence: None)
  Receive Date: 20110715
  Receipt Date: 20110712
  Transmission Date: 20111222
  Serious: Yes (Other)
  Sender: FDA-Public Use
  Company Number: US-BRISTOL-MYERS SQUIBB COMPANY-15896277

PATIENT
  Age: 68 Year
  Sex: Female

DRUGS (4)
  1. COUMADIN [Suspect]
     Route: 048
  2. PLAVIX [Suspect]
     Dosage: FILM COATED
     Route: 048
  3. LOVENOX [Suspect]
     Indication: INTERNATIONAL NORMALISED RATIO DECREASED
     Route: 058
     Dates: start: 20000101
  4. ASPIRIN [Suspect]
     Route: 048

REACTIONS (1)
  - DEEP VEIN THROMBOSIS [None]
